FAERS Safety Report 17212597 (Version 1)
Quarter: 2019Q4

REPORT INFORMATION
  Report Type: Spontaneous
  Country: KR (occurrence: KR)
  Receive Date: 20191230
  Receipt Date: 20191230
  Transmission Date: 20200122
  Serious: Yes (Other)
  Sender: FDA-Public Use
  Company Number: KR-GLAXOSMITHKLINE-KR2019APC233786

PATIENT

DRUGS (1)
  1. VENTOLIN [Suspect]
     Active Substance: ALBUTEROL SULFATE
     Indication: PRODUCT USED FOR UNKNOWN INDICATION
     Dosage: UNK

REACTIONS (7)
  - Vomiting [Unknown]
  - Overdose [Unknown]
  - Haematochezia [Unknown]
  - Hypokalaemia [Unknown]
  - Diarrhoea [Unknown]
  - Hypoglycaemia [Unknown]
  - Dehydration [Unknown]
